FAERS Safety Report 12559336 (Version 1)
Quarter: 2016Q3

REPORT INFORMATION
  Report Type: Spontaneous
  Country: FR (occurrence: FR)
  Receive Date: 20160715
  Receipt Date: 20160715
  Transmission Date: 20161109
  Serious: Yes (Death, Hospitalization)
  Sender: FDA-Public Use
  Company Number: FR-JNJFOC-20160709423

PATIENT
  Age: 81 Year
  Sex: Male

DRUGS (2)
  1. IMBRUVICA [Suspect]
     Active Substance: IBRUTINIB
     Indication: CHRONIC LYMPHOCYTIC LEUKAEMIA
     Route: 048
     Dates: start: 201601, end: 201604
  2. KARDEGIC [Interacting]
     Active Substance: ASPIRIN LYSINE
     Indication: PRODUCT USE ISSUE
     Route: 065

REACTIONS (6)
  - Drug interaction [Unknown]
  - Lung disorder [Fatal]
  - Pneumocystis jirovecii pneumonia [Fatal]
  - Respiratory distress [Fatal]
  - Hypoxia [Fatal]
  - Pulmonary alveolar haemorrhage [Fatal]

NARRATIVE: CASE EVENT DATE: 201604
